FAERS Safety Report 5971048-0 (Version None)
Quarter: 2008Q4

REPORT INFORMATION
  Report Type: 
  Country: None (occurrence: None)
  Receive Date: 20081128
  Receipt Date: 20081126
  Transmission Date: 20090506
  Serious: Yes (Life-Threatening)
  Sender: FDA-Public Use
  Company Number: PHBS2008GB06456

PATIENT

DRUGS (2)
  1. SYNTOCINON [Suspect]
     Route: 064
  2. BUPIVACAINE [Suspect]
     Route: 064

REACTIONS (5)
  - APNOEA [None]
  - DRUG EXPOSURE DURING PREGNANCY [None]
  - ENDOTRACHEAL INTUBATION [None]
  - PULSE ABSENT [None]
  - RESUSCITATION [None]
